FAERS Safety Report 17596027 (Version 1)
Quarter: 2020Q1

REPORT INFORMATION
  Report Type: Spontaneous
  Country: FR (occurrence: FR)
  Receive Date: 20200330
  Receipt Date: 20200330
  Transmission Date: 20200409
  Serious: Yes (Death, Other)
  Sender: FDA-Public Use
  Company Number: FR-BRISTOL-MYERS SQUIBB COMPANY-BMS-2020-026400

PATIENT
  Age: 77 Year
  Sex: Female
  Weight: 69 kg

DRUGS (1)
  1. OPDIVO [Suspect]
     Active Substance: NIVOLUMAB
     Indication: METASTATIC MALIGNANT MELANOMA
     Dosage: 240 MILLIGRAM,1 TOTAL
     Route: 041
     Dates: start: 20200120, end: 20200120

REACTIONS (3)
  - Encephalitis [Fatal]
  - Septic shock [Fatal]
  - Lung disorder [Fatal]

NARRATIVE: CASE EVENT DATE: 20200219
